FAERS Safety Report 18908319 (Version 2)
Quarter: 2021Q2

REPORT INFORMATION
  Report Type: Spontaneous
  Country: US (occurrence: US)
  Receive Date: 20210218
  Receipt Date: 20210520
  Transmission Date: 20210717
  Serious: No
  Sender: FDA-Public Use
  Company Number: US-AUROBINDO-AUR-APL-2021-003795

PATIENT
  Age: 40 Year
  Sex: Female
  Weight: 79.38 kg

DRUGS (2)
  1. PROGESTERONE CAPSULES 200 MG [Suspect]
     Active Substance: PROGESTERONE
     Indication: PROGESTERONE
     Dosage: 1 DOSAGE FORM, DAILY,
     Route: 048
  2. PROGESTERONE CAPSULES 200 MG [Suspect]
     Active Substance: PROGESTERONE
     Dosage: 1 DOSAGE FORM, DAILY
     Route: 048
     Dates: start: 20201209

REACTIONS (4)
  - Abdominal discomfort [Recovered/Resolved]
  - Product odour abnormal [Unknown]
  - Nausea [Recovered/Resolved]
  - Product substitution issue [Unknown]

NARRATIVE: CASE EVENT DATE: 20210106
